FAERS Safety Report 18664742 (Version 1)
Quarter: 2020Q4

REPORT INFORMATION
  Report Type: Report from Study
  Country: US (occurrence: US)
  Receive Date: 20201225
  Receipt Date: 20201225
  Transmission Date: 20210114
  Serious: Yes (Hospitalization, Other)
  Sender: FDA-Public Use
  Company Number: US-ASTRAZENECA-2020SF55948

PATIENT
  Age: 27834 Day
  Sex: Male

DRUGS (3)
  1. CALQUENCE [Suspect]
     Active Substance: ACALABRUTINIB
     Indication: CHRONIC LYMPHOCYTIC LEUKAEMIA
     Route: 048
     Dates: start: 20201012
  2. CELLCEPT [Concomitant]
     Active Substance: MYCOPHENOLATE MOFETIL\MYCOPHENOLATE MOFETIL HYDROCHLORIDE
  3. PROGRAF [Concomitant]
     Active Substance: TACROLIMUS

REACTIONS (4)
  - Clostridium difficile colitis [Unknown]
  - Infection [Unknown]
  - Body temperature decreased [Unknown]
  - Blood glucose decreased [Unknown]
